FAERS Safety Report 4881990-X (Version None)
Quarter: 2006Q1

REPORT INFORMATION
  Report Type: 
  Country: None (occurrence: None)
  Receive Date: 20060117
  Receipt Date: 20060104
  Transmission Date: 20060701
  Serious: Yes (Hospitalization)
  Sender: FDA-Public Use
  Company Number: PHRM2006FR00459

PATIENT
  Age: 76 Year
  Sex: Female

DRUGS (5)
  1. GLEEVEC [Suspect]
     Indication: CHRONIC MYELOID LEUKAEMIA
     Dosage: 300 MG, DAILY
     Route: 048
     Dates: start: 20020522
  2. GLEEVEC [Suspect]
     Dosage: 200 MG, DAILY
     Route: 048
  3. HYDREA [Suspect]
     Indication: CHRONIC MYELOID LEUKAEMIA
     Dosage: 500 MG, TID
     Route: 048
     Dates: start: 19991027, end: 20020522
  4. LOXEN [Concomitant]
     Indication: HYPERTENSION
     Dates: start: 19920101
  5. ASPIRIN [Concomitant]
     Dates: start: 19920101

REACTIONS (3)
  - LIP LESION EXCISION [None]
  - LYMPHADENECTOMY [None]
  - NEUROENDOCRINE CARCINOMA OF THE SKIN [None]
